FAERS Safety Report 14541047 (Version 2)
Quarter: 2018Q2

REPORT INFORMATION
  Report Type: Spontaneous
  Country: US (occurrence: US)
  Receive Date: 20180216
  Receipt Date: 20180410
  Transmission Date: 20180711
  Serious: Yes (Other)
  Sender: FDA-Public Use
  Company Number: US-GLAXOSMITHKLINE-US2018025647

PATIENT
  Age: 45 Year
  Sex: Female
  Weight: 115.65 kg

DRUGS (14)
  1. PRILOSEC [Concomitant]
     Active Substance: OMEPRAZOLE MAGNESIUM
  2. ZYRTEC [Concomitant]
     Active Substance: CETIRIZINE HYDROCHLORIDE
  3. BENLYSTA [Suspect]
     Active Substance: BELIMUMAB
     Dosage: UNK
     Dates: start: 20180314
  4. BENLYSTA [Suspect]
     Active Substance: BELIMUMAB
     Dosage: UNK
  5. PREDNISONE. [Concomitant]
     Active Substance: PREDNISONE
  6. ZOCOR [Concomitant]
     Active Substance: SIMVASTATIN
  7. WELLBUTRIN [Concomitant]
     Active Substance: BUPROPION HYDROCHLORIDE
  8. FOLIC ACID. [Concomitant]
     Active Substance: FOLIC ACID
  9. METOPROLOL. [Concomitant]
     Active Substance: METOPROLOL
  10. BENLYSTA [Suspect]
     Active Substance: BELIMUMAB
     Indication: SYSTEMIC LUPUS ERYTHEMATOSUS
     Dosage: 1159.10 MG, UNK
     Route: 042
     Dates: start: 20180131
  11. LEXAPRO [Concomitant]
     Active Substance: ESCITALOPRAM OXALATE
  12. ALLOPURINOL. [Concomitant]
     Active Substance: ALLOPURINOL
  13. PLAQUENIL [Concomitant]
     Active Substance: HYDROXYCHLOROQUINE SULFATE
  14. XARELTO [Concomitant]
     Active Substance: RIVAROXABAN

REACTIONS (3)
  - Respiratory tract infection [Recovering/Resolving]
  - Therapy cessation [Unknown]
  - Cough [Not Recovered/Not Resolved]

NARRATIVE: CASE EVENT DATE: 20180210
